FAERS Safety Report 4776343-9 (Version None)
Quarter: 2005Q3

REPORT INFORMATION
  Report Type: 
  Country: None (occurrence: None)
  Receive Date: 20050921
  Receipt Date: 20050901
  Transmission Date: 20060218
  Serious: Yes (Other)
  Sender: FDA-Public Use
  Company Number: US_0506119529

PATIENT
  Age: 64 Year
  Sex: Female
  Weight: 50 kg

DRUGS (2)
  1. EVISTA [Suspect]
     Indication: OSTEOPOROSIS
     Dosage: 60 MG/1 DAY
     Dates: start: 20030901
  2. FORTEO [Suspect]
     Indication: OSTEOPOROSIS
     Dosage: 20 UG/1 DAY
     Dates: start: 20050101, end: 20050601

REACTIONS (6)
  - BACK PAIN [None]
  - BONE DENSITY DECREASED [None]
  - BONE NEOPLASM MALIGNANT [None]
  - ENDOMETRIAL HYPERTROPHY [None]
  - TREATMENT NONCOMPLIANCE [None]
  - UTERINE POLYP [None]
